FAERS Safety Report 6167523-9 (Version None)
Quarter: 2009Q2

REPORT INFORMATION
  Report Type: 
  Country: None (occurrence: None)
  Receive Date: 20090424
  Receipt Date: 20080506
  Transmission Date: 20091009
  Serious: No
  Sender: FDA-Public Use
  Company Number: A0726849A

PATIENT
  Age: 48 Year
  Sex: Female
  Weight: 63.6 kg

DRUGS (5)
  1. FLOVENT [Suspect]
     Route: 055
  2. PREDNISONE [Suspect]
  3. CLARITIN [Suspect]
  4. PRILOSEC [Suspect]
  5. LUNESTA [Concomitant]

REACTIONS (1)
  - DRUG INEFFECTIVE [None]
